FAERS Safety Report 12310820 (Version 1)
Quarter: 2016Q2

REPORT INFORMATION
  Report Type: Spontaneous
  Country: US (occurrence: US)
  Receive Date: 20160427
  Receipt Date: 20160427
  Transmission Date: 20160815
  Serious: No
  Sender: FDA-Public Use
  Company Number: PHHY2016US057248

PATIENT
  Age: 16 Year
  Sex: Male

DRUGS (1)
  1. VOLTAREN [Suspect]
     Active Substance: DICLOFENAC SODIUM
     Indication: PRODUCT USED FOR UNKNOWN INDICATION
     Dosage: 2 G, QD
     Route: 061
     Dates: start: 201603

REACTIONS (5)
  - Inappropriate schedule of drug administration [Unknown]
  - Product use issue [Unknown]
  - Prescription drug used without a prescription [Unknown]
  - Circumstance or information capable of leading to medication error [Unknown]
  - Drug administered to patient of inappropriate age [Unknown]

NARRATIVE: CASE EVENT DATE: 201603
